FAERS Safety Report 7804232-1 (Version None)
Quarter: 2011Q4

REPORT INFORMATION
  Report Type: 
  Country: None (occurrence: None)
  Receive Date: 20111010
  Receipt Date: 20110926
  Transmission Date: 20120403
  Serious: Yes (Other)
  Sender: FDA-Public Use
  Company Number: PHHY2011BR86065

PATIENT
  Age: 40 Year
  Sex: Female

DRUGS (3)
  1. DIOVAN [Suspect]
     Dosage: 160 MG, QD
     Dates: start: 20020814, end: 20070101
  2. INDAPAMIDE [Concomitant]
     Dosage: 1.5 MG, DAILY
  3. TAPAZOL [Concomitant]
     Dosage: 10 MG, DAILY

REACTIONS (2)
  - DIABETES MELLITUS [None]
  - BLOOD PRESSURE INCREASED [None]
